FAERS Safety Report 4874585-5 (Version None)
Quarter: 2006Q1

REPORT INFORMATION
  Report Type: 
  Country: None (occurrence: None)
  Receive Date: 20060106
  Receipt Date: 20051130
  Transmission Date: 20060701
  Serious: Yes (Hospitalization)
  Sender: FDA-Public Use
  Company Number: US-MERCK-0512USA00091

PATIENT
  Age: 77 Year
  Sex: Female
  Weight: 71 kg

DRUGS (6)
  1. VIOXX [Suspect]
     Indication: ARTHRITIS REACTIVE
     Route: 048
     Dates: start: 20000101, end: 20040101
  2. VIOXX [Suspect]
     Indication: ARTHRALGIA
     Route: 048
     Dates: start: 20000101, end: 20040101
  3. PREMARIN [Concomitant]
     Route: 065
  4. SYNTHROID [Concomitant]
     Route: 065
  5. DITROPAN XL [Concomitant]
     Route: 065
  6. VITAMINS (UNSPECIFIED) [Concomitant]
     Route: 065

REACTIONS (26)
  - ANGINA PECTORIS [None]
  - ARTERIOSCLEROSIS CORONARY ARTERY [None]
  - ARTHRALGIA [None]
  - ATRIAL FIBRILLATION [None]
  - BACK PAIN [None]
  - CARDIOMEGALY [None]
  - CHEST PAIN [None]
  - CONSTIPATION [None]
  - DYSPHAGIA [None]
  - ESCHERICHIA URINARY TRACT INFECTION [None]
  - FATIGUE [None]
  - GASTROOESOPHAGEAL REFLUX DISEASE [None]
  - HERPES ZOSTER [None]
  - HYPOTENSION [None]
  - INCONTINENCE [None]
  - INJECTION SITE PHLEBITIS [None]
  - IRON DEFICIENCY ANAEMIA [None]
  - LETHARGY [None]
  - LISTLESS [None]
  - MITRAL VALVE INCOMPETENCE [None]
  - MYOCARDIAL INFARCTION [None]
  - PERICARDIAL EFFUSION [None]
  - PLEURAL EFFUSION [None]
  - SEPSIS [None]
  - SKIN CANCER [None]
  - TRICUSPID VALVE INCOMPETENCE [None]
